FAERS Safety Report 9529215 (Version 1)
Quarter: 2013Q2

REPORT INFORMATION
  Report Type: Spontaneous
  Country: US (occurrence: None)
  Receive Date: 20130401
  Receipt Date: 20130401
  Transmission Date: 20140414
  Serious: Yes (Other)
  Sender: FDA-Public Use
  Company Number: PHEH2012US006170

PATIENT
  Age: 71 Year
  Sex: Female

DRUGS (1)
  1. EXELON PATCH [Suspect]
     Indication: AMNESIA
     Dosage: 4.6 MG / 24 HOURS
     Route: 062
     Dates: start: 20111205, end: 20120401

REACTIONS (3)
  - Application site pruritus [None]
  - Application site erythema [None]
  - Application site rash [None]
